FAERS Safety Report 8689154 (Version 2)
Quarter: 2012Q4

REPORT INFORMATION
  Report Type: 
  Country: US (occurrence: US)
  Receive Date: 20120727
  Receipt Date: 20121121
  Transmission Date: 20130627
  Serious: Yes (Other)
  Sender: FDA-Public Use
  Company Number: US-ASTRAZENECA-2012SE50931

PATIENT
  Age: 61 Year
  Sex: Male

DRUGS (1)
  1. NEXIUM [Suspect]
     Route: 048
     Dates: start: 20120831

REACTIONS (6)
  - Myocardial infarction [Unknown]
  - Gastric perforation [Unknown]
  - Osteoporosis [Unknown]
  - Barrett^s oesophagus [Unknown]
  - Diabetes mellitus [Unknown]
  - Hiatus hernia [Unknown]
